FAERS Safety Report 13334827 (Version 1)
Quarter: 2017Q1

REPORT INFORMATION
  Report Type: Report from Study
  Country: None (occurrence: US)
  Receive Date: 20170314
  Receipt Date: 20170314
  Transmission Date: 20170428
  Serious: Yes (Hospitalization, Other)
  Sender: FDA-Public Use
  Company Number: US-ABBVIE-17K-163-1899570-00

PATIENT
  Age: 38 Year
  Sex: Female

DRUGS (1)
  1. HUMIRA [Suspect]
     Active Substance: ADALIMUMAB
     Indication: CROHN^S DISEASE
     Route: 058
     Dates: start: 2012

REACTIONS (6)
  - Hospitalisation [Unknown]
  - Ovarian cyst [Unknown]
  - Arthralgia [Not Recovered/Not Resolved]
  - Headache [Unknown]
  - Nausea [Unknown]
  - Paranasal sinus hypersecretion [Unknown]

NARRATIVE: CASE EVENT DATE: 2015
